FAERS Safety Report 4753634-9 (Version None)
Quarter: 2005Q3

REPORT INFORMATION
  Report Type: 
  Country: None (occurrence: None)
  Receive Date: 20050826
  Receipt Date: 20050805
  Transmission Date: 20060218
  Serious: Yes (Hospitalization)
  Sender: FDA-Public Use
  Company Number: 200512284JP

PATIENT
  Age: 45 Year
  Sex: Female
  Weight: 63.8 kg

DRUGS (3)
  1. AMARYL [Suspect]
     Indication: DIABETES MELLITUS
     Route: 048
     Dates: start: 20050803, end: 20050803
  2. ACTOS [Concomitant]
     Indication: DIABETES MELLITUS
     Route: 048
     Dates: start: 20040809, end: 20050803
  3. DIBETOS B [Concomitant]
     Indication: DIABETES MELLITUS
     Route: 048
     Dates: start: 20041214, end: 20050803

REACTIONS (6)
  - ANAPHYLACTIC REACTION [None]
  - ASTHMA [None]
  - HYPOXIA [None]
  - MALAISE [None]
  - SOMNOLENCE [None]
  - STRIDOR [None]
